FAERS Safety Report 4333310-7 (Version None)
Quarter: 2004Q1

REPORT INFORMATION
  Report Type: 
  Country: None (occurrence: None)
  Receive Date: 20040329
  Receipt Date: 20040112
  Transmission Date: 20041129
  Serious: No
  Sender: FDA-Public Use
  Company Number: 04P-163-0246817-00

PATIENT
  Age: 77 Year
  Sex: Male
  Weight: 67.1324 kg

DRUGS (11)
  1. HUMIRA [Suspect]
     Indication: RHEUMATOID ARTHRITIS
     Dosage: 40 MG, 1 IN 2 WK, SUBCUTANEOUS
     Route: 058
     Dates: start: 20031209
  2. DEXAMETHASONE [Concomitant]
  3. LEFLUNOMIDE [Concomitant]
  4. BUCINDOLOL HYDROCHLORIDE [Concomitant]
  5. GABABPENTIN [Concomitant]
  6. TRAMADOL HCL [Concomitant]
  7. PROMETHAZINE [Concomitant]
  8. AMITRIPTYLINE HYDROCHLORIDE [Concomitant]
  9. CALCIUM WITH VITAMIN D [Concomitant]
  10. MULTIVITAMIN [Concomitant]
  11. FOLIC ACID [Concomitant]

REACTIONS (4)
  - OTORRHOEA [None]
  - PHARYNGOLARYNGEAL PAIN [None]
  - RASH [None]
  - WEIGHT INCREASED [None]
